FAERS Safety Report 10082979 (Version 1)
Quarter: 2014Q2

REPORT INFORMATION
  Report Type: Spontaneous
  Country: PH (occurrence: PH)
  Receive Date: 20140417
  Receipt Date: 20140417
  Transmission Date: 20141212
  Serious: Yes (Death, Other)
  Sender: FDA-Public Use
  Company Number: PH-009507513-1404PHL008192

PATIENT
  Sex: Female

DRUGS (1)
  1. COZAAR [Suspect]
     Dosage: DAILY DOSAGE: ONE TABLET(STRENGTH: 25 MG), QD
     Dates: start: 2012

REACTIONS (1)
  - Aneurysm ruptured [Fatal]
